FAERS Safety Report 11868819 (Version 2)
Quarter: 2016Q1

REPORT INFORMATION
  Report Type: Report from Study
  Country: CA (occurrence: CA)
  Receive Date: 20151225
  Receipt Date: 20160212
  Transmission Date: 20160526
  Serious: Yes (Other)
  Sender: FDA-Public Use
  Company Number: CA-ROCHE-1604081

PATIENT
  Sex: Male

DRUGS (6)
  1. LASIX [Concomitant]
     Active Substance: FUROSEMIDE
  2. ESBRIET [Suspect]
     Active Substance: PIRFENIDONE
     Route: 048
     Dates: start: 20141225
  3. PREGABALIN. [Concomitant]
     Active Substance: PREGABALIN
  4. ESBRIET [Suspect]
     Active Substance: PIRFENIDONE
     Indication: IDIOPATHIC PULMONARY FIBROSIS
     Route: 048
     Dates: start: 20141218
  5. ESBRIET [Suspect]
     Active Substance: PIRFENIDONE
     Route: 048
     Dates: start: 20150101
  6. ACETAMINOPHEN/OXYCODONE HYDROCHLORIDE [Concomitant]
     Dosage: 5/25
     Route: 065

REACTIONS (2)
  - Thrombosis [Unknown]
  - Cough [Unknown]

NARRATIVE: CASE EVENT DATE: 2015
